FAERS Safety Report 18032483 (Version 4)
Quarter: 2020Q3

REPORT INFORMATION
  Report Type: Report from Study
  Country: IE (occurrence: IE)
  Receive Date: 20200716
  Receipt Date: 20200904
  Transmission Date: 20201103
  Serious: Yes (Life-Threatening, Hospitalization)
  Sender: FDA-Public Use
  Company Number: IE-PFIZER INC-2020269863

PATIENT

DRUGS (20)
  1. NASEPTIN [Concomitant]
     Active Substance: CHLORHEXIDINE HYDROCHLORIDE\NEOMYCIN SULFATE
     Indication: RHINITIS
     Dosage: UNK, 2X/DAY (UNITS: 99 (NOT KNOWN))
     Dates: start: 20200706, end: 20200708
  2. PARACETAMOL [Concomitant]
     Active Substance: ACETAMINOPHEN
     Indication: PYREXIA
  3. PIPERACILLIN/TAZOBACTAM [Concomitant]
     Active Substance: PIPERACILLIN SODIUM\TAZOBACTAM SODIUM
     Indication: FEBRILE NEUTROPENIA
     Dosage: 4.5 G, 4X/DAY (Q.D./Q.I.D)
     Dates: start: 20200627, end: 20200703
  4. ONDANSETRON [Concomitant]
     Active Substance: ONDANSETRON
     Indication: VOMITING
  5. SEPTRIN [Concomitant]
     Active Substance: SULFAMETHOXAZOLE\TRIMETHOPRIM
     Indication: PNEUMOCYSTIS JIROVECII PNEUMONIA
     Dosage: 960 MG, 2X/DAY
     Dates: start: 20200628, end: 20200629
  6. LEVOMEPROMAZINE [Concomitant]
     Active Substance: LEVOMEPROMAZINE
     Indication: NAUSEA
     Dosage: 6 MG, 2X/DAY
     Dates: start: 20200627, end: 20200708
  7. VITAMIN K1 [Concomitant]
     Active Substance: PHYTONADIONE
     Indication: COAGULOPATHY
     Dosage: 10 MG, DAILY
     Dates: start: 20200630, end: 20200702
  8. MITOXANTRONE HCL [Suspect]
     Active Substance: MITOXANTRONE HYDROCHLORIDE
     Indication: ACUTE MYELOID LEUKAEMIA
     Dosage: 20 MG/M2, CYCLIC (DAILY, IN D./QUOTID/O.D) (CURRENT COURSE: 1)
     Route: 042
     Dates: start: 20200627, end: 20200630
  9. GENTAMICIN. [Concomitant]
     Active Substance: GENTAMICIN
     Indication: FEBRILE NEUTROPENIA
     Dosage: 437 MG, DAILY (D./QUOTID/O.D)
     Dates: start: 20200627, end: 20200630
  10. HYDROCORTISONE 1% IN ABSORBASE [Concomitant]
     Active Substance: HYDROCORTISONE
     Indication: SKIN DISORDER
     Dosage: 1 %, 2X/DAY
     Dates: start: 20200629, end: 20200706
  11. LACTULOSE. [Concomitant]
     Active Substance: LACTULOSE
     Indication: CONSTIPATION
     Dosage: 5 ML, 2X/DAY
     Dates: start: 20200630, end: 20200701
  12. GEMTUZUMAB OZOGAMICIN [Suspect]
     Active Substance: GEMTUZUMAB OZOGAMICIN
     Indication: ACUTE MYELOID LEUKAEMIA
     Dosage: 5 MG (CURRENT COURSE: 1)
     Route: 042
     Dates: start: 20200703, end: 20200706
  13. AMBISOME [Concomitant]
     Active Substance: AMPHOTERICIN B
     Indication: ANTIFUNGAL PROPHYLAXIS
     Dosage: 62 MG (OTHER)
     Dates: start: 20200629, end: 20200708
  14. ONDANSETRON [Concomitant]
     Active Substance: ONDANSETRON
     Indication: NAUSEA
     Dosage: 8 MG, 3X/DAY
     Dates: start: 20200627, end: 20200708
  15. RASBURICASE [Concomitant]
     Active Substance: RASBURICASE
     Indication: BLOOD URIC ACID
     Dosage: 12.5 MG, DAILY
     Dates: start: 20200627, end: 20200628
  16. OMEPRAZOLE. [Concomitant]
     Active Substance: OMEPRAZOLE
     Indication: NAUSEA
     Dosage: 20 MG, DAILY
     Dates: start: 20200628, end: 20200708
  17. SENNA [SENNA ALEXANDRINA] [Concomitant]
     Active Substance: SENNA LEAF
     Indication: CONSTIPATION
     Dosage: 4 DF, DAILY (DOSE LAST GIVEN: 2, UNITS: 97 (OTHER), TWO TABLETS)
     Dates: start: 20200629, end: 20200705
  18. LEVOMEPROMAZINE [Concomitant]
     Active Substance: LEVOMEPROMAZINE
     Indication: VOMITING
  19. MORPHINE SULPHATE [Concomitant]
     Active Substance: MORPHINE SULFATE
     Indication: PAIN
     Dosage: 10 MG, 4X/DAY (Q.D/Q.I.D)
     Dates: start: 20200628, end: 20200629
  20. PARACETAMOL [Concomitant]
     Active Substance: ACETAMINOPHEN
     Indication: PAIN
     Dosage: 1 G, 4X/DAY
     Dates: start: 20200626

REACTIONS (1)
  - Sepsis [Recovered/Resolved]

NARRATIVE: CASE EVENT DATE: 20200712
